FAERS Safety Report 15927210 (Version 1)
Quarter: 2019Q1

REPORT INFORMATION
  Report Type: Spontaneous
  Country: PL (occurrence: PL)
  Receive Date: 20190206
  Receipt Date: 20190206
  Transmission Date: 20190417
  Serious: Yes (Hospitalization)
  Sender: FDA-Public Use
  Company Number: PHHY2019PL024063

PATIENT
  Age: 50 Year
  Sex: Female

DRUGS (6)
  1. FACTOR VIII [Suspect]
     Active Substance: ANTIHEMOPHILIC FACTOR HUMAN
     Indication: FACTOR VIII DEFICIENCY
     Route: 065
  2. PREDNISONE. [Suspect]
     Active Substance: PREDNISONE
     Indication: FACTOR VIII DEFICIENCY
     Dosage: 1 MG/KG, QD
     Route: 065
  3. CYCLOPHOSPHAMIDE. [Suspect]
     Active Substance: CYCLOPHOSPHAMIDE
     Indication: FACTOR VIII DEFICIENCY
     Route: 065
  4. RITUXIMAB. [Suspect]
     Active Substance: RITUXIMAB
     Indication: FACTOR VIII DEFICIENCY
     Route: 065
  5. METHYLPREDNISOLONE. [Suspect]
     Active Substance: METHYLPREDNISOLONE
     Indication: FACTOR VIII DEFICIENCY
     Route: 065
  6. FACTOR VII [Suspect]
     Active Substance: COAGULATION FACTOR VII HUMAN
     Indication: FACTOR VIII DEFICIENCY
     Dosage: 100 UG/KG, Q3H
     Route: 065

REACTIONS (4)
  - Haemarthrosis [Unknown]
  - Therapy non-responder [Unknown]
  - Muscle haemorrhage [Unknown]
  - Product use in unapproved indication [Unknown]
